FAERS Safety Report 11133178 (Version 2)
Quarter: 2015Q2

REPORT INFORMATION
  Report Type: Spontaneous
  Country: DE (occurrence: DE)
  Receive Date: 20150522
  Receipt Date: 20150615
  Transmission Date: 20150821
  Serious: Yes (Other)
  Sender: FDA-Public Use
  Company Number: DE-B.I. PHARMACEUTICALS,INC./RIDGEFIELD-2015-BI-23431DE

PATIENT
  Age: 77 Year
  Sex: Female
  Weight: 67 kg

DRUGS (7)
  1. MONO EMBOLEX [Concomitant]
     Active Substance: CERTOPARIN SODIUM
     Indication: PULMONARY EMBOLISM
     Dosage: 16000 U
     Route: 058
     Dates: start: 20150121
  2. PREDNISOLON [Concomitant]
     Active Substance: PREDNISOLONE
     Indication: PRODUCT USED FOR UNKNOWN INDICATION
     Route: 065
  3. GILOTRIF [Suspect]
     Active Substance: AFATINIB
     Indication: SMALL CELL LUNG CANCER
     Dosage: 40 MG
     Route: 048
     Dates: start: 20141229, end: 20150422
  4. KALTICAN FORTE [Concomitant]
     Indication: PRODUCT USED FOR UNKNOWN INDICATION
     Dosage: 1 ANZ
     Route: 048
  5. TROMCARDIN COMPLEX [Concomitant]
     Indication: ARRHYTHMIA
     Dosage: 1 ANZ
     Route: 048
  6. GILOTRIF [Suspect]
     Active Substance: AFATINIB
     Dosage: 20 MG
     Route: 048
     Dates: start: 20150429
  7. PANTOPRAZOLE SODIUM. [Concomitant]
     Active Substance: PANTOPRAZOLE SODIUM
     Indication: PRODUCT USED FOR UNKNOWN INDICATION
     Dosage: STRENGTH: 40
     Route: 065

REACTIONS (10)
  - Alopecia [Not Recovered/Not Resolved]
  - Urinary tract infection [Unknown]
  - Mucous membrane disorder [Not Recovered/Not Resolved]
  - Pneumonitis [Unknown]
  - Hypoacusis [Unknown]
  - Skin fissures [Not Recovered/Not Resolved]
  - Cystitis [Not Recovered/Not Resolved]
  - Adverse drug reaction [Unknown]
  - Pulmonary fibrosis [Unknown]
  - Alveolar lung disease [Not Recovered/Not Resolved]

NARRATIVE: CASE EVENT DATE: 20150407
